FAERS Safety Report 4357131-4 (Version None)
Quarter: 2004Q2

REPORT INFORMATION
  Report Type: 
  Country: None (occurrence: None)
  Receive Date: 20040511
  Receipt Date: 20040420
  Transmission Date: 20050107
  Serious: Yes (Hospitalization)
  Sender: FDA-Public Use
  Company Number: GBS040414806

PATIENT
  Age: 49 Year
  Sex: Male

DRUGS (3)
  1. VANCOMYCIN [Suspect]
     Indication: STAPHYLOCOCCAL INFECTION
     Dosage: 1 G/2 DAY
     Dates: start: 20040316, end: 20040401
  2. ASPIRIN [Concomitant]
  3. RANITIDINE [Concomitant]

REACTIONS (3)
  - ARTHRALGIA [None]
  - LEUKOPENIA [None]
  - RASH [None]
